FAERS Safety Report 26087177 (Version 1)
Quarter: 2025Q4

REPORT INFORMATION
  Report Type: Report from Study
  Country: MD (occurrence: MD)
  Receive Date: 20251125
  Receipt Date: 20251125
  Transmission Date: 20260118
  Serious: Yes (Other)
  Sender: RANBAXY
  Company Number: MD-SUN PHARMACEUTICAL INDUSTRIES LTD-2025RR-538203

PATIENT
  Age: 11 Month
  Sex: Male

DRUGS (25)
  1. LEVETIRACETAM [Suspect]
     Active Substance: LEVETIRACETAM
     Indication: Epilepsy
     Dosage: UNK
     Route: 065
  2. LEVETIRACETAM [Suspect]
     Active Substance: LEVETIRACETAM
     Indication: Epileptic encephalopathy
  3. LEVETIRACETAM [Suspect]
     Active Substance: LEVETIRACETAM
     Indication: Quadriplegia
  4. LEVETIRACETAM [Suspect]
     Active Substance: LEVETIRACETAM
     Indication: Strabismus
  5. LEVETIRACETAM [Suspect]
     Active Substance: LEVETIRACETAM
     Indication: Optic atrophy
  6. LEVETIRACETAM [Suspect]
     Active Substance: LEVETIRACETAM
     Indication: Brain injury
  7. VALPROIC ACID [Suspect]
     Active Substance: VALPROIC ACID
     Indication: Epilepsy
     Dosage: UNK
     Route: 065
  8. VALPROIC ACID [Suspect]
     Active Substance: VALPROIC ACID
     Indication: Epileptic encephalopathy
  9. VALPROIC ACID [Suspect]
     Active Substance: VALPROIC ACID
     Indication: Epilepsy
  10. VALPROIC ACID [Suspect]
     Active Substance: VALPROIC ACID
     Indication: Quadriplegia
  11. VALPROIC ACID [Suspect]
     Active Substance: VALPROIC ACID
     Indication: Strabismus
  12. VALPROIC ACID [Suspect]
     Active Substance: VALPROIC ACID
     Indication: Optic atrophy
  13. VALPROIC ACID [Suspect]
     Active Substance: VALPROIC ACID
     Indication: Brain injury
  14. CLONAZEPAM [Suspect]
     Active Substance: CLONAZEPAM
     Indication: Epilepsy
     Dosage: UNK
     Route: 065
  15. CLONAZEPAM [Suspect]
     Active Substance: CLONAZEPAM
     Indication: Epileptic encephalopathy
  16. CLONAZEPAM [Suspect]
     Active Substance: CLONAZEPAM
     Indication: Quadriplegia
  17. CLONAZEPAM [Suspect]
     Active Substance: CLONAZEPAM
     Indication: Strabismus
  18. CLONAZEPAM [Suspect]
     Active Substance: CLONAZEPAM
     Indication: Optic atrophy
  19. CLONAZEPAM [Suspect]
     Active Substance: CLONAZEPAM
     Indication: Brain injury
  20. VIGABATRIN [Suspect]
     Active Substance: VIGABATRIN
     Indication: Epilepsy
     Dosage: UNK
     Route: 065
  21. VIGABATRIN [Suspect]
     Active Substance: VIGABATRIN
     Indication: Epileptic encephalopathy
  22. VIGABATRIN [Suspect]
     Active Substance: VIGABATRIN
     Indication: Quadriplegia
  23. VIGABATRIN [Suspect]
     Active Substance: VIGABATRIN
     Indication: Strabismus
  24. VIGABATRIN [Suspect]
     Active Substance: VIGABATRIN
     Indication: Optic atrophy
  25. VIGABATRIN [Suspect]
     Active Substance: VIGABATRIN
     Indication: Brain injury

REACTIONS (1)
  - Drug resistance [Not Recovered/Not Resolved]
